FAERS Safety Report 10403077 (Version 2)
Quarter: 2016Q2

REPORT INFORMATION
  Report Type: Spontaneous
  Country: JP (occurrence: JP)
  Receive Date: 20140822
  Receipt Date: 20160603
  Transmission Date: 20160815
  Serious: Yes (Other)
  Sender: FDA-Public Use
  Company Number: PHHY2012JP135205

PATIENT
  Age: 70 Year
  Sex: Female

DRUGS (3)
  1. EXJADE [Suspect]
     Active Substance: DEFERASIROX
     Dosage: 875 MG, QD (5 MG/KG/DAY)
     Route: 048
     Dates: start: 201110
  2. EXJADE [Suspect]
     Active Substance: DEFERASIROX
     Dosage: 625 MG, QD (5 MG/KG/DAY)
     Route: 048
     Dates: start: 201108
  3. EXJADE [Suspect]
     Active Substance: DEFERASIROX
     Indication: IRON OVERLOAD
     Dosage: 250 MG, QD (5 MG/KG/DAY)
     Route: 048
     Dates: start: 20110701

REACTIONS (1)
  - Pancytopenia [Unknown]
